FAERS Safety Report 7060758-2 (Version None)
Quarter: 2010Q4

REPORT INFORMATION
  Report Type: 
  Country: None (occurrence: None)
  Receive Date: 20101025
  Receipt Date: 20101011
  Transmission Date: 20110411
  Serious: Yes (Disabling, Other)
  Sender: FDA-Public Use
  Company Number: GB-PURDUE-USA-2010-0044589

PATIENT
  Age: 64 Year
  Sex: Male
  Weight: 107 kg

DRUGS (4)
  1. TRAMADOL HCL [Suspect]
     Indication: PRODUCT USED FOR UNKNOWN INDICATION
  2. CELEBREX [Interacting]
     Indication: ARTHRITIS
  3. KETOPROFEN [Interacting]
     Indication: PRODUCT USED FOR UNKNOWN INDICATION
  4. VORICONAZOLE [Interacting]
     Indication: BRONCHOPULMONARY ASPERGILLOSIS ALLERGIC
     Dosage: 200 MG, BID
     Route: 048
     Dates: start: 20100201, end: 20100507

REACTIONS (9)
  - CONSTIPATION [None]
  - DIARRHOEA [None]
  - DRUG INEFFECTIVE [None]
  - DRUG INTERACTION [None]
  - FEELING ABNORMAL [None]
  - HYPOAESTHESIA [None]
  - NEUROPATHY PERIPHERAL [None]
  - THERAPEUTIC RESPONSE UNEXPECTED [None]
  - VOMITING [None]
